FAERS Safety Report 7242206-2 (Version None)
Quarter: 2011Q1

REPORT INFORMATION
  Report Type: 
  Country: None (occurrence: None)
  Receive Date: 20110124
  Receipt Date: 20110114
  Transmission Date: 20110831
  Serious: Yes (Hospitalization)
  Sender: FDA-Public Use
  Company Number: NL-MEDIMMUNE-MEDI-0012282

PATIENT
  Sex: Female
  Weight: 5.4 kg

DRUGS (2)
  1. SYNAGIS [Suspect]
     Route: 030
     Dates: start: 20110114, end: 20110114
  2. SYNAGIS [Suspect]
     Route: 030
     Dates: start: 20101022, end: 20101217

REACTIONS (9)
  - FLUID INTAKE REDUCED [None]
  - PANIC ATTACK [None]
  - DYSPNOEA [None]
  - INFANTILE SPITTING UP [None]
  - COUGH [None]
  - BODY TEMPERATURE INCREASED [None]
  - NASOPHARYNGITIS [None]
  - WHEEZING [None]
  - RESPIRATORY SYNCYTIAL VIRUS TEST POSITIVE [None]
